FAERS Safety Report 8129732-9 (Version None)
Quarter: 2012Q1

REPORT INFORMATION
  Report Type: 
  Country: None (occurrence: None)
  Receive Date: 20120210
  Receipt Date: 20120206
  Transmission Date: 20120608
  Serious: Yes (Death)
  Sender: FDA-Public Use
  Company Number: JP-CUBIST-$E2B0000000182

PATIENT
  Age: 85 Year
  Sex: Male

DRUGS (5)
  1. CUBICIN [Suspect]
     Route: 041
     Dates: start: 20120127, end: 20120129
  2. CARPERITIDE [Concomitant]
     Indication: POLYURIA
     Dosage: DAILY DOSAGE UNKNOWN
     Route: 042
     Dates: start: 20120126, end: 20120128
  3. CUBICIN [Suspect]
     Indication: SPONDYLITIS
     Route: 041
     Dates: start: 20120119, end: 20120125
  4. ALL OTHER THERAPEUTIC PRODUCTS [Concomitant]
     Indication: DISSEMINATED INTRAVASCULAR COAGULATION
     Dosage: DAILY DOSAGE UNKNOWN
     Route: 042
     Dates: start: 20120126, end: 20120129
  5. ZYVOX [Concomitant]
     Indication: STAPHYLOCOCCAL INFECTION
     Dosage: DAILY DOSAGE UNKNOWN
     Route: 065
     Dates: start: 20120105, end: 20120119

REACTIONS (1)
  - RENAL FAILURE ACUTE [None]
